FAERS Safety Report 6832810-5 (Version None)
Quarter: 2010Q3

REPORT INFORMATION
  Report Type: 
  Country: None (occurrence: None)
  Receive Date: 20100712
  Receipt Date: 20070322
  Transmission Date: 20110219
  Serious: No
  Sender: FDA-Public Use
  Company Number: US-PFIZER INC-2007023632

PATIENT
  Sex: Female
  Weight: 81.19 kg

DRUGS (11)
  1. CHANTIX [Suspect]
     Indication: SMOKING CESSATION THERAPY
     Route: 048
     Dates: start: 20070201
  2. LOTREL [Concomitant]
  3. LEXAPRO [Concomitant]
  4. NEURONTIN [Concomitant]
  5. PRAVASTATIN [Concomitant]
  6. GLUCOSAMINE [Concomitant]
  7. VITAMIN E [Concomitant]
  8. MULTI-VITAMINS [Concomitant]
  9. OSCAL [Concomitant]
  10. NICOTINE [Concomitant]
  11. NICOTINE RESIN [Concomitant]

REACTIONS (2)
  - ABNORMAL DREAMS [None]
  - NAUSEA [None]
